FAERS Safety Report 20955587 (Version 1)
Quarter: 2022Q2

REPORT INFORMATION
  Report Type: Spontaneous
  Country: FR (occurrence: FR)
  Receive Date: 20220614
  Receipt Date: 20220614
  Transmission Date: 20220721
  Serious: Yes (Other)
  Sender: FDA-Public Use
  Company Number: None

PATIENT
  Age: 69 Year
  Sex: Male

DRUGS (4)
  1. LEVOFLOXACIN [Suspect]
     Active Substance: LEVOFLOXACIN
     Indication: Costochondritis
     Dosage: 750 MILLIGRAM, QD
     Route: 048
     Dates: start: 20210724, end: 20210726
  2. FLUCONAZOLE [Suspect]
     Active Substance: FLUCONAZOLE
     Indication: Costochondritis
     Dosage: 400 MILLIGRAM, QD
     Route: 048
     Dates: start: 20210803, end: 20210824
  3. FLUCONAZOLE [Suspect]
     Active Substance: FLUCONAZOLE
     Dosage: 400 MILLIGRAM, QD
     Route: 048
     Dates: start: 20210724, end: 20210726
  4. RIFAMPIN [Suspect]
     Active Substance: RIFAMPIN
     Indication: Costochondritis
     Dosage: 900 MILLIGRAM, QD
     Route: 048
     Dates: start: 20210724, end: 20210726

REACTIONS (2)
  - Laryngeal oedema [Recovered/Resolved]
  - Myalgia [Recovered/Resolved]

NARRATIVE: CASE EVENT DATE: 20210725
